FAERS Safety Report 25795437 (Version 1)
Quarter: 2025Q3

REPORT INFORMATION
  Report Type: Spontaneous
  Country: JP (occurrence: JP)
  Receive Date: 20250912
  Receipt Date: 20250912
  Transmission Date: 20251021
  Serious: Yes (Other)
  Sender: RANBAXY
  Company Number: JP-SUN PHARMACEUTICAL INDUSTRIES LTD-2025RR-526701

PATIENT
  Age: 82 Year
  Sex: Female

DRUGS (8)
  1. OXALIPLATIN [Suspect]
     Active Substance: OXALIPLATIN
     Indication: Gastric cancer
     Route: 065
  2. SPIRONOLACTONE [Suspect]
     Active Substance: SPIRONOLACTONE
     Indication: Gastric cancer
     Route: 065
  3. FUROSEMIDE [Suspect]
     Active Substance: FUROSEMIDE
     Indication: Gastric cancer
     Route: 065
  4. PACLITAXEL [Suspect]
     Active Substance: PACLITAXEL
     Indication: Gastric cancer
     Route: 065
  5. RAMUCIRUMAB [Suspect]
     Active Substance: RAMUCIRUMAB
     Indication: Gastric cancer
     Route: 065
  6. TEGAFUR [Suspect]
     Active Substance: TEGAFUR
     Indication: Gastric cancer
     Route: 065
  7. GIMERACIL [Suspect]
     Active Substance: GIMERACIL
     Indication: Gastric cancer
     Route: 065
  8. OTERACIL [Suspect]
     Active Substance: OTERACIL
     Indication: Gastric cancer
     Route: 065

REACTIONS (4)
  - Disease progression [Unknown]
  - Conjunctival haemorrhage [Unknown]
  - Oedema [Unknown]
  - Drug ineffective [Unknown]
